FAERS Safety Report 12989846 (Version 2)
Quarter: 2016Q4

REPORT INFORMATION
  Report Type: Spontaneous
  Country: US (occurrence: US)
  Receive Date: 20161201
  Receipt Date: 20161213
  Transmission Date: 20170207
  Serious: No
  Sender: FDA-Public Use
  Company Number: US-ELI_LILLY_AND_COMPANY-US201607008883

PATIENT
  Age: 45 Year

DRUGS (1)
  1. CYMBALTA [Suspect]
     Active Substance: DULOXETINE HYDROCHLORIDE
     Indication: PRODUCT USED FOR UNKNOWN INDICATION
     Dosage: UNK, UNKNOWN
     Route: 048

REACTIONS (7)
  - Malaise [Unknown]
  - Paraesthesia [Unknown]
  - Nausea [Unknown]
  - Insomnia [Unknown]
  - Auditory disorder [Unknown]
  - Drug withdrawal syndrome [Unknown]
  - Headache [Unknown]

NARRATIVE: CASE EVENT DATE: 200711
